FAERS Safety Report 7504756-0 (Version None)
Quarter: 2011Q2

REPORT INFORMATION
  Report Type: 
  Country: None (occurrence: None)
  Receive Date: 20110525
  Receipt Date: 20101118
  Transmission Date: 20111010
  Serious: No
  Sender: FDA-Public Use
  Company Number: US-AMGEN-USASP2010005750

PATIENT

DRUGS (1)
  1. ARANESP [Suspect]
     Indication: NEPHROGENIC ANAEMIA
     Dosage: UNK
     Dates: start: 20101101, end: 20100101

REACTIONS (1)
  - DIZZINESS [None]
